FAERS Safety Report 17227573 (Version 1)
Quarter: 2020Q1

REPORT INFORMATION
  Report Type: Report from Study
  Country: AU (occurrence: AU)
  Receive Date: 20200103
  Receipt Date: 20200103
  Transmission Date: 20200409
  Serious: No
  Sender: FDA-Public Use
  Company Number: AU-BEH-2019110718

PATIENT
  Age: 59 Year
  Sex: Female
  Weight: 60 kg

DRUGS (1)
  1. HIZENTRA [Suspect]
     Active Substance: HUMAN IMMUNOGLOBULIN G
     Indication: SECONDARY IMMUNODEFICIENCY
     Dosage: 06 GRAM, QW
     Route: 058
     Dates: start: 20190815

REACTIONS (1)
  - Infusion site rash [Recovering/Resolving]

NARRATIVE: CASE EVENT DATE: 20190912
